FAERS Safety Report 5779837-2 (Version None)
Quarter: 2008Q2

REPORT INFORMATION
  Report Type: 
  Country: None (occurrence: None)
  Receive Date: 20080620
  Receipt Date: 20080609
  Transmission Date: 20081010
  Serious: No
  Sender: FDA-Public Use
  Company Number: US-BAYER-200817698NA

PATIENT
  Age: 28 Year
  Sex: Female
  Weight: 113 kg

DRUGS (2)
  1. YAZ [Suspect]
     Indication: LIBIDO DECREASED
     Route: 048
     Dates: start: 20080101
  2. CELEBREX [Concomitant]
     Indication: PAIN IN EXTREMITY
     Dates: start: 20080301

REACTIONS (2)
  - MUSCULAR WEAKNESS [None]
  - PAIN IN EXTREMITY [None]
